FAERS Safety Report 19496404 (Version 2)
Quarter: 2021Q3

REPORT INFORMATION
  Report Type: Spontaneous
  Country: DE (occurrence: DE)
  Receive Date: 20210706
  Receipt Date: 20210719
  Transmission Date: 20211014
  Serious: Yes (Hospitalization)
  Sender: FDA-Public Use
  Company Number: DE-TORRENT-00020578

PATIENT
  Age: 83 Year
  Sex: Female
  Weight: 70 kg

DRUGS (1)
  1. VENLAFAXINE [Suspect]
     Active Substance: VENLAFAXINE HYDROCHLORIDE
     Indication: PRODUCT USED FOR UNKNOWN INDICATION
     Dosage: NK

REACTIONS (7)
  - Anxiety [Unknown]
  - Hot flush [Unknown]
  - Agitation [Unknown]
  - Palpitations [Unknown]
  - Tachypnoea [Unknown]
  - Dyspnoea [Unknown]
  - Hyperhidrosis [Unknown]
